FAERS Safety Report 9062017 (Version 1)
Quarter: 2013Q1

REPORT INFORMATION
  Report Type: Spontaneous
  Country: US (occurrence: None)
  Receive Date: 20130122
  Receipt Date: 20130122
  Transmission Date: 20140127
  Serious: Yes (Death)
  Sender: FDA-Public Use
  Company Number: FK201300080

PATIENT
  Age: 65 Year
  Sex: Female

DRUGS (3)
  1. MORPHINE [Suspect]
     Indication: PRODUCT USED FOR UNKNOWN INDICATION
  2. CITALOPRAM (CITALOPRAM) [Suspect]
  3. METOCLOPRAMIDE METOCLOPRAMIDE [Suspect]

REACTIONS (1)
  - Toxicity to various agents [None]
